FAERS Safety Report 14317634 (Version 3)
Quarter: 2018Q1

REPORT INFORMATION
  Report Type: Spontaneous
  Country: FR (occurrence: FR)
  Receive Date: 20171222
  Receipt Date: 20180309
  Transmission Date: 20180509
  Serious: Yes (Hospitalization, Other)
  Sender: FDA-Public Use
  Company Number: FR-AUROBINDO-AUR-APL-2017-46515

PATIENT
  Age: 13 Year
  Sex: Male

DRUGS (16)
  1. METHOTREXATE. [Suspect]
     Active Substance: METHOTREXATE
     Indication: ACUTE LYMPHOCYTIC LEUKAEMIA
     Dosage: 12 MG,
     Route: 037
     Dates: start: 20170110, end: 20170202
  2. CYTARABINE. [Suspect]
     Active Substance: CYTARABINE
     Indication: ACUTE LYMPHOCYTIC LEUKAEMIA
     Dosage: 30 MG, QD
     Route: 037
     Dates: start: 20170122, end: 20170202
  3. PEGASPARGASE [Suspect]
     Active Substance: PEGASPARGASE
     Dosage: 2175 IU, QD
     Route: 042
     Dates: start: 20170919
  4. VINCRISTINE [Suspect]
     Active Substance: VINCRISTINE
     Indication: ACUTE LYMPHOCYTIC LEUKAEMIA
     Dosage: 1.1 MG, UNK
     Route: 042
     Dates: start: 20170117, end: 20170207
  5. DAUNORUBICIN [Suspect]
     Active Substance: DAUNORUBICIN
     Indication: ACUTE MYELOID LEUKAEMIA
     Dosage: 52.5 MG, QD
     Route: 042
     Dates: start: 20170915, end: 20171006
  6. PEGASPARGASE [Suspect]
     Active Substance: PEGASPARGASE
     Dosage: 2175 IU, QD
     Route: 042
     Dates: start: 20171003
  7. VINCRISTINE [Suspect]
     Active Substance: VINCRISTINE
     Dosage: 2 MG, QD
     Route: 042
     Dates: start: 20171006
  8. CYTARABINE. [Suspect]
     Active Substance: CYTARABINE
     Dosage: 30 MG, QD
     Route: 037
     Dates: start: 20171002
  9. PEGASPARGASE [Suspect]
     Active Substance: PEGASPARGASE
     Dosage: 2175 IU, QD
     Route: 042
     Dates: start: 20170919, end: 20171003
  10. PREDNISONE. [Suspect]
     Active Substance: PREDNISONE
     Indication: ACUTE LYMPHOCYTIC LEUKAEMIA
     Dosage: 45 MG, UNK
     Route: 048
     Dates: start: 20170117, end: 20170213
  11. PREDNISONE. [Suspect]
     Active Substance: PREDNISONE
     Dosage: 110 MG, QD
     Route: 048
     Dates: start: 20171006
  12. DAUNORUBICIN [Suspect]
     Active Substance: DAUNORUBICIN
     Indication: ACUTE LYMPHOCYTIC LEUKAEMIA
     Dosage: 22 MG, UNK
     Route: 042
     Dates: start: 20170117, end: 20170207
  13. HYDROCORTISONE. [Suspect]
     Active Substance: HYDROCORTISONE
     Dosage: 15 MG, QD
     Route: 037
     Dates: start: 20170920
  14. HYDROCORTISONE. [Suspect]
     Active Substance: HYDROCORTISONE
     Indication: ACUTE LYMPHOCYTIC LEUKAEMIA
     Dosage: 15 MG, UNK
     Route: 037
     Dates: start: 20170122, end: 20170202
  15. METHOTREXATE. [Suspect]
     Active Substance: METHOTREXATE
     Dosage: 15 MG, QD
     Route: 037
     Dates: start: 20171002
  16. PEGASPARGASE [Suspect]
     Active Substance: PEGASPARGASE
     Indication: ACUTE LYMPHOCYTIC LEUKAEMIA
     Dosage: 1800 IU, UNK
     Route: 042
     Dates: start: 20170121, end: 20170121

REACTIONS (1)
  - Hypofibrinogenaemia [Recovered/Resolved]

NARRATIVE: CASE EVENT DATE: 20170202
